FAERS Safety Report 8655039 (Version 4)
Quarter: 2012Q4

REPORT INFORMATION
  Report Type: Report from Study
  Country: DE (occurrence: DE)
  Receive Date: 20120709
  Receipt Date: 20121228
  Transmission Date: 20130627
  Serious: Yes (Death, Hospitalization)
  Sender: FDA-Public Use
  Company Number: DE-ABBOTT-12P-062-0952656-00

PATIENT
  Age: 67 None
  Sex: Male
  Weight: 60 kg

DRUGS (10)
  1. HUMIRA 40 MG/ 0.8 ML PRE-FILLED SYRINGE [Suspect]
     Indication: POLYARTHRITIS
     Route: 058
     Dates: start: 201011, end: 201111
  2. HUMIRA 40 MG/ 0.8 ML PRE-FILLED SYRINGE [Suspect]
     Route: 058
     Dates: start: 201201, end: 201206
  3. ARAVA [Concomitant]
     Indication: POLYARTHRITIS
     Dosage: 10 mg daily
     Route: 048
     Dates: start: 20100517, end: 201201
  4. CELEBREX [Concomitant]
     Indication: PAIN
     Route: 048
     Dates: start: 201205
  5. CALCICARE [Concomitant]
     Indication: PRODUCT USED FOR UNKNOWN INDICATION
     Route: 048
     Dates: start: 201005
  6. PREDNISOLON [Concomitant]
     Indication: POLYARTHRITIS
     Route: 048
  7. RAMIPRIL [Concomitant]
     Indication: HYPERTENSION
  8. FOLSAN [Concomitant]
     Indication: PRODUCT USED FOR UNKNOWN INDICATION
     Route: 048
     Dates: start: 201202
  9. MTX [Concomitant]
     Indication: PRODUCT USED FOR UNKNOWN INDICATION
     Dates: start: 2009
  10. CORTISONE [Concomitant]
     Indication: PRODUCT USED FOR UNKNOWN INDICATION
     Dates: start: 2009

REACTIONS (19)
  - Hydrocephalus [Fatal]
  - Cerebral haemorrhage [Fatal]
  - Brain oedema [Fatal]
  - Cerebral ventricle dilatation [Fatal]
  - Encephalitis [Unknown]
  - Pleurisy [Unknown]
  - Cerebral ventricle dilatation [Unknown]
  - Staphylococcal infection [Unknown]
  - Dizziness [Unknown]
  - Nausea [Unknown]
  - Syncope [Unknown]
  - Pleural decortication [Unknown]
  - Abdominal pain upper [Unknown]
  - Syncope [Unknown]
  - Hyponatraemia [Unknown]
  - Urinary tract infection [Unknown]
  - Personality change [Unknown]
  - Acute respiratory failure [Unknown]
  - Pupils unequal [Unknown]
